FAERS Safety Report 23319058 (Version 1)
Quarter: 2023Q4

REPORT INFORMATION
  Report Type: Spontaneous
  Country: US (occurrence: US)
  Receive Date: 20231220
  Receipt Date: 20231220
  Transmission Date: 20240110
  Serious: No
  Sender: FDA-Public Use
  Company Number: US-Accord-306956

PATIENT
  Sex: Female

DRUGS (6)
  1. BUPROPION HYDROCHLORIDE [Suspect]
     Active Substance: BUPROPION HYDROCHLORIDE
     Indication: Depression
     Dosage: 150 MG, EXTENDED- RELEASE
     Route: 065
     Dates: start: 20230130
  2. EZETIMIBE [Concomitant]
     Active Substance: EZETIMIBE
  3. METFORMIN [Concomitant]
     Active Substance: METFORMIN HYDROCHLORIDE
  4. LORAZEPAM [Concomitant]
     Active Substance: LORAZEPAM
  5. BUPROPION [Concomitant]
     Active Substance: BUPROPION
     Dosage: 300MG
  6. SYNTHROID [Concomitant]
     Active Substance: LEVOTHYROXINE SODIUM

REACTIONS (5)
  - Product odour abnormal [Unknown]
  - Eructation [Not Recovered/Not Resolved]
  - Depressed mood [Not Recovered/Not Resolved]
  - Diarrhoea [Not Recovered/Not Resolved]
  - Flatulence [Not Recovered/Not Resolved]
